FAERS Safety Report 7007978-0 (Version None)
Quarter: 2010Q3

REPORT INFORMATION
  Report Type: 
  Country: None (occurrence: None)
  Receive Date: 20100922
  Receipt Date: 20100908
  Transmission Date: 20110219
  Serious: Yes (Hospitalization)
  Sender: FDA-Public Use
  Company Number: PHHY2010JP58554

PATIENT

DRUGS (2)
  1. EXFORGE [Suspect]
     Indication: HYPERTENSION
     Dosage: 1 DF, QD
     Route: 048
     Dates: end: 20100827
  2. EXFORGE [Suspect]
     Dosage: 1 DF, QD
     Route: 048
     Dates: start: 20100908

REACTIONS (3)
  - CEREBRAL INFARCTION [None]
  - GRIP STRENGTH DECREASED [None]
  - HYPOAESTHESIA [None]
